FAERS Safety Report 5401936-5 (Version None)
Quarter: 2007Q3

REPORT INFORMATION
  Report Type: 
  Country: None (occurrence: None)
  Receive Date: 20070726
  Receipt Date: 20070611
  Transmission Date: 20080115
  Serious: Yes (Life-Threatening, Hospitalization)
  Sender: FDA-Public Use
  Company Number: 6034974

PATIENT
  Age: 71 Year
  Sex: Female

DRUGS (11)
  1. CO-TENIDONE (CHLORTALIDONE, ATENOLOL) [Suspect]
     Indication: BLOOD PRESSURE INCREASED
     Route: 048
     Dates: start: 20040624, end: 20070516
  2. VERAPAMIL [Suspect]
     Indication: HYPERTENSION
     Dates: start: 20070515, end: 20070516
  3. AMLODIPINE BESYLATE [Concomitant]
  4. BENDROFLUMETHIAZIDE (BENDROFLUMETHIAZIDE) [Concomitant]
  5. CO-DYDRAMOL (PARACETAMOL, DIHYDROCODEINE BITARTRATE) [Concomitant]
  6. DICLOMAX SR (DICLOFENAC SODIUM) [Concomitant]
  7. ELANTAN LA (ISOSORBIDE MONONITRATE) [Concomitant]
  8. LANSOPRAZOLE [Concomitant]
  9. LIPITOR [Concomitant]
  10. LISINOPRIL [Concomitant]
  11. ZOPICLONE (ZOPICLONE) [Concomitant]

REACTIONS (1)
  - ATRIOVENTRICULAR BLOCK COMPLETE [None]
